FAERS Safety Report 11044159 (Version 1)
Quarter: 2015Q2

REPORT INFORMATION
  Report Type: Spontaneous
  Country: US (occurrence: US)
  Receive Date: 20150417
  Receipt Date: 20150417
  Transmission Date: 20150821
  Serious: No
  Sender: FDA-Public Use
  Company Number: US-PFIZER INC-2015131106

PATIENT
  Age: 66 Year
  Sex: Female
  Weight: 59 kg

DRUGS (3)
  1. XELJANZ [Suspect]
     Active Substance: TOFACITINIB CITRATE
     Indication: RHEUMATOID ARTHRITIS
  2. XELJANZ [Suspect]
     Active Substance: TOFACITINIB CITRATE
     Indication: ARTHRITIS
     Dosage: 1 DF, 2X/DAY
     Route: 048
     Dates: start: 201407
  3. XELJANZ [Suspect]
     Active Substance: TOFACITINIB CITRATE
     Indication: OSTEOPOROSIS

REACTIONS (2)
  - Abdominal pain upper [Unknown]
  - Drug intolerance [Unknown]

NARRATIVE: CASE EVENT DATE: 201407
